FAERS Safety Report 4412498-3 (Version None)
Quarter: 2004Q2

REPORT INFORMATION
  Report Type: 
  Country: None (occurrence: None)
  Receive Date: 20040630
  Receipt Date: 20040422
  Transmission Date: 20050107
  Serious: No
  Sender: FDA-Public Use
  Company Number: 04P-163-0258377-00

PATIENT
  Age: 81 Year
  Sex: Female
  Weight: 62.5964 kg

DRUGS (4)
  1. HUMIRA [Suspect]
     Indication: RHEUMATOID ARTHRITIS
     Dosage: SEE IMAGE
     Route: 058
     Dates: start: 20030601, end: 20040201
  2. HUMIRA [Suspect]
     Indication: RHEUMATOID ARTHRITIS
     Dosage: SEE IMAGE
     Route: 058
     Dates: start: 20040301
  3. METHOTREXATE SODIUM [Concomitant]
  4. BUCINDOLOL HYDROCHLORIDE [Concomitant]

REACTIONS (1)
  - CELLULITIS [None]
